FAERS Safety Report 7921519-2 (Version None)
Quarter: 2011Q4

REPORT INFORMATION
  Report Type: 
  Country: None (occurrence: None)
  Receive Date: 20111117
  Receipt Date: 20110906
  Transmission Date: 20120403
  Serious: No
  Sender: FDA-Public Use
  Company Number: US-MYLANLABS-2011S1017519

PATIENT
  Age: 59 Year
  Sex: Female

DRUGS (9)
  1. CETIRIZINE HCL [Concomitant]
  2. ESTRADIOL [Concomitant]
  3. TRIAMTERENE AND HYDROCHLOROTHIAZIDE [Suspect]
     Indication: HYPERTENSION
     Dates: start: 20110805, end: 20110811
  4. TRIAMTERENE AND HYDROCHLOROTHIAZIDE [Suspect]
     Dates: start: 20110805, end: 20110811
  5. OMEPRAZOLE [Concomitant]
  6. NITROGLYCERIN [Concomitant]
  7. DILTIAZEM HCL [Concomitant]
  8. ESTROVEN [Concomitant]
  9. VITAMIN E [Concomitant]

REACTIONS (4)
  - MUSCLE SPASMS [None]
  - ABDOMINAL DISTENSION [None]
  - DRUG INEFFECTIVE [None]
  - OEDEMA [None]
